FAERS Safety Report 16173456 (Version 1)
Quarter: 2019Q2

REPORT INFORMATION
  Report Type: Spontaneous
  Country: US (occurrence: US)
  Receive Date: 20190408
  Receipt Date: 20190408
  Transmission Date: 20190711
  Serious: Yes (Other)
  Sender: FDA-Public Use
  Company Number: None

PATIENT
  Age: 63 Year
  Sex: Male
  Weight: 62.1 kg

DRUGS (12)
  1. NORCO [Concomitant]
     Active Substance: ACETAMINOPHEN\HYDROCODONE BITARTRATE
  2. ELIQUIS [Concomitant]
     Active Substance: APIXABAN
  3. MORPHINE SULFATE. [Concomitant]
     Active Substance: MORPHINE SULFATE
  4. CENTRUM [Concomitant]
     Active Substance: VITAMINS
  5. TOUJEO [Concomitant]
     Active Substance: INSULIN GLARGINE
  6. SENNA [Concomitant]
     Active Substance: SENNA LEAF\SENNOSIDES\SENNOSIDES A AND B
  7. FOLIC ACID. [Concomitant]
     Active Substance: FOLIC ACID
  8. NOVOLIN R [Concomitant]
     Active Substance: INSULIN HUMAN
  9. CYCLOBENZAPRINE. [Concomitant]
     Active Substance: CYCLOBENZAPRINE
  10. INLYTA [Suspect]
     Active Substance: AXITINIB
     Indication: RENAL CANCER
     Route: 048
     Dates: start: 20190322
  11. TRADJENTA [Concomitant]
     Active Substance: LINAGLIPTIN
  12. PRAVASTATIN. [Concomitant]
     Active Substance: PRAVASTATIN

REACTIONS (3)
  - Asthenia [None]
  - Diarrhoea [None]
  - Nausea [None]
